FAERS Safety Report 8620718-4 (Version None)
Quarter: 2012Q3

REPORT INFORMATION
  Report Type: 
  Country: None (occurrence: None)
  Receive Date: 20120824
  Receipt Date: 20120816
  Transmission Date: 20120928
  Serious: Yes (Disabling, Other)
  Sender: FDA-Public Use
  Company Number: US-ABBOTT-11P-163-0712580-00

PATIENT
  Sex: Male

DRUGS (1)
  1. HUMIRA [Suspect]
     Indication: RHEUMATOID ARTHRITIS
     Dates: start: 20100713, end: 20100801

REACTIONS (14)
  - CONDITION AGGRAVATED [None]
  - QUALITY OF LIFE DECREASED [None]
  - NEUROPATHY PERIPHERAL [None]
  - NERVE INJURY [None]
  - MUSCLE SPASMS [None]
  - NEURALGIA [None]
  - PAIN [None]
  - GAIT DISTURBANCE [None]
  - FALL [None]
  - INFLUENZA LIKE ILLNESS [None]
  - FATIGUE [None]
  - OEDEMA PERIPHERAL [None]
  - PARAESTHESIA [None]
  - TOXIC NEUROPATHY [None]
